FAERS Safety Report 16756984 (Version 1)
Quarter: 2019Q3

REPORT INFORMATION
  Report Type: Spontaneous
  Country: FI (occurrence: FI)
  Receive Date: 20190829
  Receipt Date: 20190829
  Transmission Date: 20191005
  Serious: Yes (Life-Threatening, Other)
  Sender: FDA-Public Use
  Company Number: FI-JNJFOC-20190835030

PATIENT
  Age: 75 Year
  Sex: Female

DRUGS (9)
  1. CANDESARTAN CILEXETIL. [Concomitant]
     Active Substance: CANDESARTAN CILEXETIL
     Dosage: 16 MG, QD
     Route: 048
  2. VAGIFEM [Concomitant]
     Active Substance: ESTRADIOL
     Dosage: UNK
     Route: 067
  3. FURESIS [Concomitant]
     Active Substance: FUROSEMIDE
     Dosage: UNK
     Route: 048
  4. ORLOC [Concomitant]
     Active Substance: BISOPROLOL FUMARATE
     Dosage: 10 MG, QD
     Route: 048
  5. RIVAROXABAN [Suspect]
     Active Substance: RIVAROXABAN
     Indication: ATRIAL FIBRILLATION
     Dosage: 20 MG, QD
     Route: 048
     Dates: start: 20190425, end: 20190804
  6. SPIRIX [Concomitant]
     Active Substance: SPIRONOLACTONE
     Dosage: UNK
     Route: 048
  7. THYROXIN [Concomitant]
     Active Substance: LEVOTHYROXINE
     Dosage: UNK
     Route: 048
  8. ATORVASTATINE ACCORD [Concomitant]
     Active Substance: ATORVASTATIN
     Dosage: UNK?ATORVASTATIN ACCORD
     Route: 048
  9. HYDREA [Concomitant]
     Active Substance: HYDROXYUREA
     Dosage: UNK
     Route: 048

REACTIONS (3)
  - Hepatic haemorrhage [Not Recovered/Not Resolved]
  - Fall [Not Recovered/Not Resolved]
  - Hepatic haematoma [Not Recovered/Not Resolved]

NARRATIVE: CASE EVENT DATE: 20190804
